FAERS Safety Report 9752431 (Version 2)
Quarter: 2014Q2

REPORT INFORMATION
  Report Type: Spontaneous
  Country: US (occurrence: US)
  Receive Date: 20131213
  Receipt Date: 20140402
  Transmission Date: 20141212
  Serious: No
  Sender: FDA-Public Use
  Company Number: US-PFIZER INC-2013356381

PATIENT
  Age: 48 Year
  Sex: Male
  Weight: 90.7 kg

DRUGS (3)
  1. LYRICA [Suspect]
     Indication: DIABETIC NEUROPATHY
     Dosage: 100 MG, 3X/DAY
     Dates: start: 201308, end: 201312
  2. LYRICA [Suspect]
     Indication: FIBROMYALGIA
  3. CLONAZEPAM [Concomitant]
     Dosage: 1 MG, 3X/DAY

REACTIONS (12)
  - Rash [Recovering/Resolving]
  - Pruritus [Recovering/Resolving]
  - Joint swelling [Recovering/Resolving]
  - Dyspnoea [Recovering/Resolving]
  - Agitation [Recovering/Resolving]
  - Aggression [Recovering/Resolving]
  - Irritability [Recovering/Resolving]
  - Oedema [Recovering/Resolving]
  - Psoriasis [Recovering/Resolving]
  - Mood altered [Recovering/Resolving]
  - Hypersensitivity [Recovering/Resolving]
  - Local swelling [Recovering/Resolving]
